FAERS Safety Report 9506528 (Version 1)
Quarter: 2013Q3

REPORT INFORMATION
  Report Type: Spontaneous
  Country: US (occurrence: None)
  Receive Date: 20130905
  Receipt Date: 20130905
  Transmission Date: 20140515
  Serious: Yes (Hospitalization)
  Sender: FDA-Public Use
  Company Number: None

PATIENT
  Age: 52 Year
  Sex: Female
  Weight: 92.5 kg

DRUGS (2)
  1. BENICAR-HCT [Suspect]
     Indication: HYPERTENSION
     Dosage: 20-12.5 MG QD ORAL
     Route: 048
     Dates: start: 20100326, end: 20130830
  2. BENICAR [Suspect]
     Indication: HYPERTENSION
     Route: 048
     Dates: start: 20130831, end: 20130902

REACTIONS (9)
  - Diarrhoea [None]
  - Vomiting [None]
  - Weight decreased [None]
  - Diverticulum [None]
  - Abdominal pain [None]
  - Cardiac arrest [None]
  - Hypokalaemia [None]
  - Hypocalcaemia [None]
  - Dehydration [None]
